FAERS Safety Report 7271451-5 (Version None)
Quarter: 2011Q1

REPORT INFORMATION
  Report Type: 
  Country: None (occurrence: None)
  Receive Date: 20110203
  Receipt Date: 20081201
  Transmission Date: 20110831
  Serious: No
  Sender: FDA-Public Use
  Company Number: 2008BI032553

PATIENT
  Age: 41 Year
  Sex: Female

DRUGS (1)
  1. TYSABRI [Suspect]
     Indication: MULTIPLE SCLEROSIS
     Route: 042
     Dates: start: 20080911, end: 20100913

REACTIONS (3)
  - MUSCULOSKELETAL DISORDER [None]
  - WHITE BLOOD CELL COUNT DECREASED [None]
  - DEPRESSION [None]
